FAERS Safety Report 6129661-6 (Version None)
Quarter: 2009Q1

REPORT INFORMATION
  Report Type: 
  Country: None (occurrence: None)
  Receive Date: 20090324
  Receipt Date: 20090312
  Transmission Date: 20090719
  Serious: Yes (Other)
  Sender: FDA-Public Use
  Company Number: US-ELI_LILLY_AND_COMPANY-US200903003492

PATIENT
  Sex: Male

DRUGS (1)
  1. CYMBALTA [Suspect]
     Indication: DEPRESSION

REACTIONS (1)
  - HOMICIDE [None]
